FAERS Safety Report 18345928 (Version 2)
Quarter: 2020Q4

REPORT INFORMATION
  Report Type: Report from Study
  Country: US (occurrence: US)
  Receive Date: 20201005
  Receipt Date: 20201016
  Transmission Date: 20210114
  Serious: Yes (Death, Other)
  Sender: FDA-Public Use
  Company Number: US-JNJFOC-20200943940

PATIENT
  Sex: Male

DRUGS (3)
  1. ENZALUTAMIDE [Suspect]
     Active Substance: ENZALUTAMIDE
     Indication: PROSTATE CANCER METASTATIC
     Route: 048
  2. ZYTIGA [Suspect]
     Active Substance: ABIRATERONE ACETATE
     Indication: PROSTATE CANCER METASTATIC
     Route: 048
  3. PREDNISONE. [Suspect]
     Active Substance: PREDNISONE
     Indication: PROSTATE CANCER METASTATIC
     Route: 048

REACTIONS (6)
  - Asthenia [Unknown]
  - Radiculopathy [Unknown]
  - Infection [Unknown]
  - Prostate cancer [Fatal]
  - Cardiac disorder [Unknown]
  - Spinal cord disorder [Unknown]
